FAERS Safety Report 7363040-9 (Version None)
Quarter: 2011Q1

REPORT INFORMATION
  Report Type: 
  Country: None (occurrence: None)
  Receive Date: 20110321
  Receipt Date: 20110311
  Transmission Date: 20110831
  Serious: Yes (Other)
  Sender: FDA-Public Use
  Company Number: US-PFIZER INC-2006061406

PATIENT
  Sex: Female

DRUGS (4)
  1. NEURONTIN [Suspect]
     Dosage: 600 MG, 2X/DAY
     Dates: start: 20010710
  2. NEURONTIN [Suspect]
     Dosage: 600 MG, UNK
     Dates: start: 20010410
  3. NEURONTIN [Suspect]
     Dosage: 900MG/DAY
     Dates: start: 20011127
  4. NEURONTIN [Suspect]
     Dosage: 300 MG, 2X/DAY
     Dates: start: 20020817

REACTIONS (1)
  - SUICIDE ATTEMPT [None]
